FAERS Safety Report 9207986 (Version 2)
Quarter: 2013Q3

REPORT INFORMATION
  Report Type: Report from Study
  Country: US (occurrence: US)
  Receive Date: 20130403
  Receipt Date: 20130715
  Transmission Date: 20140515
  Serious: Yes (Other)
  Sender: FDA-Public Use
  Company Number: US-BRISTOL-MYERS SQUIBB COMPANY-18719393

PATIENT
  Age: 61 Year
  Sex: Male

DRUGS (5)
  1. NIVOLUMAB [Suspect]
     Indication: NON-SMALL CELL LUNG CANCER
     Dosage: NIVOLUMAB 1MG/KG 82MG/DOSE (TOTAL)?NO OF DOSE:1?LAST DOSE:22FEB13?INT:15MAR2013?RES:14MAY13
     Route: 042
     Dates: start: 20130222
  2. IPILIMUMAB [Suspect]
     Indication: NON-SMALL CELL LUNG CANCER
     Dosage: IPILIMUMAB 3MG/KG 242MG/DOSE (TOTAL)?NO OF DOSE:1?LAST DOSE:22FEB13?INT:15MAR2013?RES:14MAY13
     Route: 042
     Dates: start: 20130222
  3. IBUPROFEN [Concomitant]
     Indication: PAIN
     Route: 048
     Dates: start: 20121201
  4. COMPAZINE [Concomitant]
     Indication: NAUSEA
     Dosage: DOSAGE:PER 6HRS
     Route: 048
     Dates: start: 20130215, end: 20130305
  5. ONDANSETRON [Concomitant]
     Indication: NAUSEA
     Dosage: DOSAGE:PER 8HRS
     Route: 048
     Dates: start: 20130305

REACTIONS (1)
  - Tongue discolouration [Recovered/Resolved]
